FAERS Safety Report 7879829-3 (Version None)
Quarter: 2011Q4

REPORT INFORMATION
  Report Type: 
  Country: None (occurrence: None)
  Receive Date: 20111101
  Receipt Date: 20111025
  Transmission Date: 20120403
  Serious: Yes (Death)
  Sender: FDA-Public Use
  Company Number: JP-ASTRAZENECA-2011SE59825

PATIENT
  Age: 80 Year
  Sex: Male

DRUGS (7)
  1. ROHYPNOL [Concomitant]
     Route: 048
  2. DEPAKENE [Concomitant]
     Route: 048
  3. SEROQUEL [Suspect]
     Route: 048
     Dates: end: 20110925
  4. OVULANZE TAIYO [Concomitant]
     Route: 048
  5. SEROQUEL [Suspect]
     Route: 048
     Dates: start: 20110926
  6. BROTIZOLAM [Concomitant]
     Route: 048
  7. LOBU [Concomitant]
     Route: 048

REACTIONS (1)
  - INTERSTITIAL LUNG DISEASE [None]
